FAERS Safety Report 13627516 (Version 2)
Quarter: 2017Q3

REPORT INFORMATION
  Report Type: Spontaneous
  Country: IT (occurrence: IT)
  Receive Date: 20170608
  Receipt Date: 20170809
  Transmission Date: 20171127
  Serious: Yes (Hospitalization, Other)
  Sender: FDA-Public Use
  Company Number: IT-009507513-1705ITA013247

PATIENT
  Age: 44 Year
  Sex: Female
  Weight: 57 kg

DRUGS (11)
  1. PANTOPRAZOLE [Concomitant]
     Active Substance: PANTOPRAZOLE
     Dosage: 40 MG, UNKNOWN
  2. DOMPERIDONE [Concomitant]
     Active Substance: DOMPERIDONE
     Dosage: 1 G, BID
  3. BACTRIM [Concomitant]
     Active Substance: SULFAMETHOXAZOLE\TRIMETHOPRIM
     Dosage: 1 DF, QD
  4. HYDROXYUREA. [Concomitant]
     Active Substance: HYDROXYUREA
     Dosage: 3 G, QD
  5. FASTURTEC [Concomitant]
     Active Substance: RASBURICASE
     Dosage: 15 MG, UNKNOWN
  6. NOXAFIL [Suspect]
     Active Substance: POSACONAZOLE
     Indication: CHRONIC MYELOID LEUKAEMIA
     Dosage: UNK
     Route: 048
     Dates: start: 201705, end: 201705
  7. CORTISONE ACETATE. [Concomitant]
     Active Substance: CORTISONE ACETATE
  8. FUROSEMIDE. [Concomitant]
     Active Substance: FUROSEMIDE
     Dosage: 60 MG, UNKNOWN
  9. MOXIFLOXACIN. [Concomitant]
     Active Substance: MOXIFLOXACIN
     Dosage: 400 MG, UNKNOWN
  10. FLUIMUCIL [Concomitant]
     Active Substance: ACETYLCYSTEINE
  11. ACETAMINOPHEN. [Concomitant]
     Active Substance: ACETAMINOPHEN

REACTIONS (39)
  - Anaemia [Unknown]
  - Blood creatinine increased [Recovered/Resolved]
  - C-reactive protein increased [Recovered/Resolved]
  - Mean cell haemoglobin increased [Recovered/Resolved]
  - Red cell distribution width increased [Unknown]
  - White blood cell count increased [Unknown]
  - Alanine aminotransferase increased [Recovered/Resolved]
  - Gamma-glutamyltransferase increased [Recovered/Resolved]
  - Monocyte count increased [Unknown]
  - Activated partial thromboplastin time shortened [Unknown]
  - Blood sodium decreased [Unknown]
  - Neutrophil percentage decreased [Unknown]
  - Red blood cell count decreased [Recovered/Resolved]
  - Aspartate aminotransferase increased [Recovered/Resolved]
  - Chronic kidney disease [Unknown]
  - Blast cell count increased [Unknown]
  - Blood alkaline phosphatase increased [Recovered/Resolved]
  - Blood lactate dehydrogenase increased [Unknown]
  - Lymphocyte count increased [Unknown]
  - Blood calcium decreased [Unknown]
  - Azotaemia [Unknown]
  - Blood sodium increased [Unknown]
  - Blood potassium decreased [Recovered/Resolved]
  - PO2 decreased [Unknown]
  - Haemoglobin decreased [Unknown]
  - Product use in unapproved indication [Unknown]
  - Blood glucose increased [Unknown]
  - Blood uric acid decreased [Unknown]
  - Lipase increased [Unknown]
  - Prothrombin time prolonged [Recovered/Resolved]
  - Red blood cell sedimentation rate increased [Unknown]
  - Haematocrit decreased [Unknown]
  - Lymphocyte percentage decreased [Unknown]
  - Red blood cell hypochromic morphology present [Recovered/Resolved]
  - Blood bicarbonate increased [Unknown]
  - Carbon dioxide increased [Unknown]
  - Blood creatine phosphokinase decreased [Unknown]
  - Platelet count decreased [Unknown]
  - Protein total decreased [Unknown]

NARRATIVE: CASE EVENT DATE: 201705
